FAERS Safety Report 8943727 (Version 2)
Quarter: 2013Q1

REPORT INFORMATION
  Report Type: Spontaneous
  Country: IT (occurrence: IT)
  Receive Date: 20121204
  Receipt Date: 20130107
  Transmission Date: 20140127
  Serious: Yes (Disabling)
  Sender: FDA-Public Use
  Company Number: PHHY2012IT110009

PATIENT
  Sex: Female

DRUGS (3)
  1. ACLASTA [Suspect]
     Indication: OSTEOPOROTIC FRACTURE
     Dosage: 5 MG,ANNUALLY
     Route: 042
     Dates: start: 20070101
  2. FOSAVANCE [Interacting]
     Indication: OSTEOPOROTIC FRACTURE
     Dosage: 1 DF,ALENDRONIC ACID 70MG AND CHOLECALCIPHEROL 700 MCG
     Dates: start: 20051001, end: 20071001
  3. DELTACORTENE [Concomitant]
     Dosage: 2.5 MG, UNK
     Route: 048
     Dates: start: 20120301, end: 20120315

REACTIONS (2)
  - Osteonecrosis of jaw [Not Recovered/Not Resolved]
  - Drug interaction [Not Recovered/Not Resolved]
